FAERS Safety Report 8298077-9 (Version None)
Quarter: 2012Q2

REPORT INFORMATION
  Report Type: 
  Country: None (occurrence: None)
  Receive Date: 20120419
  Receipt Date: 20120405
  Transmission Date: 20120825
  Serious: Yes (Hospitalization, Other)
  Sender: FDA-Public Use
  Company Number: US-BAXTER-2012BAX000776

PATIENT
  Sex: Female

DRUGS (4)
  1. DIANEAL [Suspect]
     Indication: PERITONEAL DIALYSIS
     Route: 033
     Dates: end: 20120319
  2. DIANEAL [Suspect]
     Route: 033
     Dates: end: 20120319
  3. DIANEAL LOW CALCIUM W/ DEXTROSE 1.5% [Suspect]
     Indication: PERITONEAL DIALYSIS
     Route: 033
     Dates: end: 20120319
  4. DIANEAL LOW CALCIUM W/ DEXTROSE 1.5% [Suspect]
     Route: 033
     Dates: end: 20120319

REACTIONS (4)
  - MALNUTRITION [None]
  - SEPSIS [None]
  - URINARY TRACT INFECTION [None]
  - HYPOTENSION [None]
